FAERS Safety Report 22103959 (Version 2)
Quarter: 2023Q2

REPORT INFORMATION
  Report Type: Spontaneous
  Country: US (occurrence: US)
  Receive Date: 20230316
  Receipt Date: 20230410
  Transmission Date: 20230722
  Serious: Yes (Death, Other)
  Sender: FDA-Public Use
  Company Number: US-PFIZER INC-202300104795

PATIENT
  Sex: Male

DRUGS (1)
  1. BACTERIOSTATIC WATER [Suspect]
     Active Substance: WATER
     Dosage: UNK
     Route: 058

REACTIONS (3)
  - Death [Fatal]
  - Dementia [Unknown]
  - Product storage error [Unknown]
